FAERS Safety Report 15419033 (Version 1)
Quarter: 2018Q3

REPORT INFORMATION
  Report Type: Spontaneous
  Country: FR (occurrence: FR)
  Receive Date: 20180924
  Receipt Date: 20180924
  Transmission Date: 20181010
  Serious: Yes (Hospitalization)
  Sender: FDA-Public Use
  Company Number: FR-MYLANLABS-2018M1069120

PATIENT
  Age: 64 Year
  Sex: Male
  Weight: 82 kg

DRUGS (6)
  1. SOTALOL. [Suspect]
     Active Substance: SOTALOL
     Indication: ATRIAL FIBRILLATION
     Dosage: 80 MG, QD
     Route: 048
  2. CLAMOXYL                           /00249602/ [Suspect]
     Active Substance: AMOXICILLIN
     Indication: INFECTION
     Dosage: UNK
     Route: 048
  3. METFORMIN [Suspect]
     Active Substance: METFORMIN HYDROCHLORIDE
     Indication: INSULIN-REQUIRING TYPE 2 DIABETES MELLITUS
     Dosage: 1500 MG, QD
     Route: 048
  4. TOUJEO [Suspect]
     Active Substance: INSULIN GLARGINE
     Indication: INSULIN-REQUIRING TYPE 2 DIABETES MELLITUS
     Dosage: 26 IU, QD
     Route: 048
  5. CORTANCYL [Suspect]
     Active Substance: PREDNISONE
     Indication: RHEUMATOID ARTHRITIS
     Dosage: 10 MG, QD
     Route: 048
  6. PREVISCAN                          /00261401/ [Suspect]
     Active Substance: PENTOXIFYLLINE
     Indication: ATRIAL FIBRILLATION
     Dosage: 1.5 DF, QD
     Route: 048

REACTIONS (1)
  - Acquired haemophilia [Recovering/Resolving]

NARRATIVE: CASE EVENT DATE: 20180410
